FAERS Safety Report 7805620-X (Version None)
Quarter: 2011Q4

REPORT INFORMATION
  Report Type: 
  Country: None (occurrence: None)
  Receive Date: 20111010
  Receipt Date: 20110929
  Transmission Date: 20120403
  Serious: Yes (Hospitalization)
  Sender: FDA-Public Use
  Company Number: US-CELGENEUS-163-21880-11072225

PATIENT
  Sex: Female
  Weight: 57 kg

DRUGS (23)
  1. RENVELA [Concomitant]
     Route: 065
  2. VICODIN [Concomitant]
     Route: 065
  3. DEXAMETHASONE [Concomitant]
     Route: 065
  4. PLAVIX [Concomitant]
     Indication: ANTIPLATELET THERAPY
     Route: 065
  5. CAPTOPRIL [Concomitant]
     Dosage: 5 MILLIGRAM
     Route: 065
  6. CEFUROXIME [Concomitant]
     Route: 065
  7. DIOVAN [Concomitant]
     Route: 065
  8. TRANSFUSIONS [Concomitant]
     Route: 041
  9. HUMALOG [Concomitant]
     Route: 065
  10. LACTULOSE [Concomitant]
     Route: 065
  11. RANEXA [Concomitant]
     Route: 065
  12. RANOLAZINE [Concomitant]
     Dosage: 5 MILLIGRAM
     Route: 065
  13. CARVEDILOL [Concomitant]
     Dosage: 25 MILLIGRAM
     Route: 065
  14. HYDROXINE [Concomitant]
     Route: 065
  15. VALSARTAN [Concomitant]
     Dosage: 320 MILLIGRAM
     Route: 065
  16. REVLIMID [Suspect]
     Dosage: 5 MILLIGRAM
     Route: 048
     Dates: start: 20100801
  17. DAILY VITE [Concomitant]
     Route: 065
  18. ALPRAZOLAM [Concomitant]
     Route: 065
  19. AMLODIPINE [Concomitant]
     Route: 065
  20. FLUID [Concomitant]
     Indication: HYPOTENSION
     Route: 041
     Dates: start: 20110701
  21. REVLIMID [Suspect]
     Dosage: 5 MILLIGRAM
     Route: 048
     Dates: start: 20110527
  22. LIPITOR [Concomitant]
     Route: 065
  23. ASPIRIN [Concomitant]
     Indication: ANTIPLATELET THERAPY
     Route: 065

REACTIONS (7)
  - NEUTROPENIA [None]
  - FALL [None]
  - DIARRHOEA [None]
  - SUBDURAL HAEMATOMA [None]
  - CARDIAC FAILURE CONGESTIVE [None]
  - AMMONIA INCREASED [None]
  - HEPATIC FUNCTION ABNORMAL [None]
